FAERS Safety Report 17614693 (Version 5)
Quarter: 2020Q3

REPORT INFORMATION
  Report Type: Report from Study
  Country: US (occurrence: US)
  Receive Date: 20200402
  Receipt Date: 20200812
  Transmission Date: 20201102
  Serious: Yes (Other)
  Sender: FDA-Public Use
  Company Number: NVSC2020US088831

PATIENT
  Sex: Female

DRUGS (2)
  1. COSENTYX [Suspect]
     Active Substance: SECUKINUMAB
     Dosage: 300 MG, Q4W
     Route: 058
  2. COSENTYX [Suspect]
     Active Substance: SECUKINUMAB
     Indication: PSORIASIS
     Dosage: 300 MG, (QW ONCE WEEKLY FOR 5 WEEKS (LOADING) THEN ONCE EVERY 4 WEEKS)
     Route: 058

REACTIONS (13)
  - Rash macular [Unknown]
  - Haemorrhage [Unknown]
  - Scab [Recovering/Resolving]
  - Skin exfoliation [Unknown]
  - Erythema [Recovered/Resolved]
  - Skin reaction [Unknown]
  - Feeling hot [Unknown]
  - Skin irritation [Unknown]
  - Psoriasis [Unknown]
  - Scratch [Unknown]
  - Skin atrophy [Unknown]
  - Pruritus [Recovered/Resolved]
  - Drug ineffective [Unknown]
